FAERS Safety Report 10573246 (Version 2)
Quarter: 2015Q2

REPORT INFORMATION
  Report Type: Spontaneous
  Country: US (occurrence: None)
  Receive Date: 20141104
  Receipt Date: 20150416
  Transmission Date: 20150821
  Serious: Yes (Hospitalization)
  Sender: FDA-Public Use
  Company Number: AUR-APL-2014-09431

PATIENT
  Age: 67 Year
  Sex: Female
  Weight: 92.5 kg

DRUGS (16)
  1. VICODIN [Suspect]
     Active Substance: ACETAMINOPHEN\HYDROCODONE BITARTRATE
     Indication: PAIN
     Dosage: 10/325MG, 2 DF, 3 TIMES A DAY, ORAL
     Route: 048
     Dates: start: 20130923, end: 20140718
  2. OMEGA 3 FISH OIL (FISH OIL) [Concomitant]
     Active Substance: OMEGA-3 FATTY ACIDS
  3. BUTALBITAL [Concomitant]
     Active Substance: BUTALBITAL
  4. IPRATROPIUM BROMIDE. [Concomitant]
     Active Substance: IPRATROPIUM BROMIDE
  5. ALLOPURINOL. [Concomitant]
     Active Substance: ALLOPURINOL
  6. LISINOPRIL (LISINOPRIL) UNKNOWN, UNKNOWN [Suspect]
     Active Substance: LISINOPRIL
     Indication: HYPERTENSION
     Route: 048
     Dates: start: 201208, end: 20140718
  7. VITAMIN B (VITAMIN B COMPLEX) [Concomitant]
  8. PONARIS /01391601/  (EUCALYPTUS GLOBULUS OIL, GOSSYPIUM SPP, SEED OIL, MELALEUCA LEUCADENDRA OIL, MENTHA X PIPERITA OIL) [Concomitant]
  9. GABAPENTIN. [Concomitant]
     Active Substance: GABAPENTIN
  10. GLUCOSAMINE [Concomitant]
     Active Substance: GLUCOSAMINE
  11. MULTIVITAMINS (ASCORBIC ACID, ERGOCALCIFEROL, FOLIC ACID, NICOTINAMIDE, PANTHENOL, RETINOL, RIBOFLAVIN, THIAMINE HYDROCHLORIDE) [Concomitant]
     Active Substance: VITAMINS
  12. ASPIRIN (ACETYLSALICYLIC ACID) [Concomitant]
     Active Substance: ASPIRIN
  13. VESICARE [Concomitant]
     Active Substance: SOLIFENACIN SUCCINATE
  14. BACLOFEN. [Concomitant]
     Active Substance: BACLOFEN
  15. METOPROLOL (METOPROLOL) UNKNOWN, UNKNOWN [Suspect]
     Active Substance: METOPROLOL
     Indication: HYPERTENSION
     Route: 048
     Dates: start: 20130823, end: 20140718
  16. NEXIUM [Concomitant]
     Active Substance: ESOMEPRAZOLE MAGNESIUM

REACTIONS (1)
  - Hypotension [None]

NARRATIVE: CASE EVENT DATE: 20140718
